FAERS Safety Report 9214876 (Version 1)
Quarter: 2013Q2

REPORT INFORMATION
  Report Type: Spontaneous
  Country: MX (occurrence: MX)
  Receive Date: 20130405
  Receipt Date: 20130405
  Transmission Date: 20140414
  Serious: Yes (Other)
  Sender: FDA-Public Use
  Company Number: MX-GLAXOSMITHKLINE-A1018446A

PATIENT
  Age: 86 Year
  Sex: Male

DRUGS (1)
  1. AROPAX [Suspect]
     Dosage: 20MG PER DAY
     Route: 048

REACTIONS (1)
  - Hypoacusis [Not Recovered/Not Resolved]
